FAERS Safety Report 18986560 (Version 1)
Quarter: 2021Q1

REPORT INFORMATION
  Report Type: Other
  Country: FR (occurrence: FR)
  Receive Date: 20210309
  Receipt Date: 20210309
  Transmission Date: 20210420
  Serious: Yes (Other)
  Sender: FDA-Public Use
  Company Number: FR-ROCHE-2775766

PATIENT
  Age: 69 Year
  Sex: Male

DRUGS (11)
  1. CEFTRIAXONE. [Suspect]
     Active Substance: CEFTRIAXONE
     Indication: COVID-19
     Route: 065
  2. ASPIRIN. [Concomitant]
     Active Substance: ASPIRIN
  3. APIXABAN [Concomitant]
     Active Substance: APIXABAN
  4. HYDROXYCARBAMIDE [Concomitant]
     Active Substance: HYDROXYUREA
  5. ATENOLOL. [Concomitant]
     Active Substance: ATENOLOL
  6. AZITHROMYCIN ANHYDROUS. [Concomitant]
     Active Substance: AZITHROMYCIN ANHYDROUS
     Route: 065
  7. PIRFENIDONE. [Suspect]
     Active Substance: PIRFENIDONE
     Indication: IDIOPATHIC PULMONARY FIBROSIS
     Route: 065
     Dates: start: 201809, end: 201904
  8. OMEPRAZOLE. [Concomitant]
     Active Substance: OMEPRAZOLE
  9. HYDROXYCHLOROQUINE [Concomitant]
     Active Substance: HYDROXYCHLOROQUINE
     Route: 065
  10. LEVOCETIRIZINE [Concomitant]
     Active Substance: LEVOCETIRIZINE
  11. RUXOLITINIB [Concomitant]
     Active Substance: RUXOLITINIB

REACTIONS (4)
  - Skin toxicity [Unknown]
  - Off label use [Unknown]
  - Hepatotoxicity [Unknown]
  - Intentional product use issue [Unknown]
